FAERS Safety Report 6933255-X (Version None)
Quarter: 2010Q3

REPORT INFORMATION
  Report Type: 
  Country: None (occurrence: None)
  Receive Date: 20100820
  Receipt Date: 20100809
  Transmission Date: 20110219
  Serious: Yes (Hospitalization, Other)
  Sender: FDA-Public Use
  Company Number: NO-PFIZER INC-2010084759

PATIENT
  Age: 75 Year
  Sex: Male

DRUGS (5)
  1. SPIRONOLACTONE [Suspect]
     Dosage: 25 MG, DAILY
  2. RAMIPRIL [Interacting]
     Dosage: 10 MG, DAILY
  3. METOPROLOL [Interacting]
     Dosage: 100 MG, DAILY
  4. BUMETANIDE [Interacting]
     Dosage: 1.5 MG, DAILY
  5. DIGITOXIN [Concomitant]
     Dosage: 50 UG, DAILY

REACTIONS (5)
  - BRADYCARDIA [None]
  - CARDIOGENIC SHOCK [None]
  - DRUG INTERACTION [None]
  - HYPERKALAEMIA [None]
  - RENAL FAILURE ACUTE [None]
